FAERS Safety Report 7792950-3 (Version None)
Quarter: 2011Q4

REPORT INFORMATION
  Report Type: 
  Country: None (occurrence: None)
  Receive Date: 20111003
  Receipt Date: 20110923
  Transmission Date: 20120403
  Serious: Yes (Hospitalization)
  Sender: FDA-Public Use
  Company Number: PHHY2011NL84987

PATIENT
  Sex: Female

DRUGS (3)
  1. ZOMETA [Suspect]
     Indication: BREAST CANCER METASTATIC
     Dosage: 4 MG/5 ML, 1X PER 28 DAYS
     Route: 042
     Dates: start: 20101122
  2. ZOMETA [Suspect]
     Dosage: 4 MG/5 ML, 1X PER 28 DAYS
     Route: 042
     Dates: start: 20110829
  3. ZOMETA [Suspect]
     Dosage: 4 MG/5 ML, 1X PER 28 DAYS
     Route: 042
     Dates: start: 20110923

REACTIONS (3)
  - PURULENT DISCHARGE [None]
  - CATHETER SITE INFLAMMATION [None]
  - INFECTION [None]
